FAERS Safety Report 9475596 (Version 2)
Quarter: 2013Q4

REPORT INFORMATION
  Report Type: Spontaneous
  Country: US (occurrence: US)
  Receive Date: 20130826
  Receipt Date: 20131030
  Transmission Date: 20140711
  Serious: Yes (Other)
  Sender: FDA-Public Use
  Company Number: US-BAYER-2013-101218

PATIENT
  Age: 35 Year
  Sex: Female
  Weight: 66.67 kg

DRUGS (4)
  1. MIRENA [Suspect]
     Indication: CONTRACEPTION
     Dosage: 20 MCG/24HR, CONT
     Route: 015
     Dates: start: 20130709
  2. LEVOTHYROXINE SODIUM [Concomitant]
     Dosage: 50 MCG/24HR, UNK
     Route: 048
  3. LEXAPRO [Concomitant]
     Dosage: 20 MG, ONCE
     Route: 048
  4. SYNTHROID [Concomitant]
     Dosage: UNK

REACTIONS (7)
  - Abdominal pain [Not Recovered/Not Resolved]
  - Back pain [Recovered/Resolved]
  - Abasia [Recovered/Resolved]
  - Decreased activity [Not Recovered/Not Resolved]
  - Vaginal discharge [Not Recovered/Not Resolved]
  - Abdominal distension [None]
  - Pelvic pain [None]
